FAERS Safety Report 10460737 (Version 1)
Quarter: 2014Q3

REPORT INFORMATION
  Report Type: Spontaneous
  Country: US (occurrence: US)
  Receive Date: 20140918
  Receipt Date: 20140918
  Transmission Date: 20150326
  Serious: No
  Sender: FDA-Public Use
  Company Number: US-BIOGENIDEC-2014BI094313

PATIENT
  Age: 53 Year
  Sex: Female

DRUGS (1)
  1. AVONEX [Suspect]
     Active Substance: INTERFERON BETA-1A
     Indication: MULTIPLE SCLEROSIS
     Route: 030
     Dates: start: 20140527

REACTIONS (5)
  - Stress [Recovered/Resolved]
  - Migraine [Recovered/Resolved]
  - Mydriasis [Not Recovered/Not Resolved]
  - Fear [Recovered/Resolved]
  - Lens disorder [Unknown]

NARRATIVE: CASE EVENT DATE: 20140908
